FAERS Safety Report 11999835 (Version 1)
Quarter: 2016Q1

REPORT INFORMATION
  Report Type: Report from Study
  Country: US (occurrence: US)
  Receive Date: 20160204
  Receipt Date: 20160204
  Transmission Date: 20160526
  Serious: Yes (Death)
  Sender: FDA-Public Use
  Company Number: US-MYLANLABS-2016M1004527

PATIENT

DRUGS (5)
  1. AFATINIB [Suspect]
     Active Substance: AFATINIB
     Dosage: 20 MG DAILY
     Route: 048
  2. PACLITAXEL. [Suspect]
     Active Substance: PACLITAXEL
     Indication: SQUAMOUS CELL CARCINOMA OF HEAD AND NECK
     Dosage: 175 MG/METER SQUARE DAY 1 OF 21 DAYS CYCLE
     Route: 041
  3. CARBOPLATIN. [Concomitant]
     Active Substance: CARBOPLATIN
     Indication: SQUAMOUS CELL CARCINOMA OF HEAD AND NECK
     Dosage: AUC 6 MG/ML MIN DAY 1 OF 21 DAYS CYCLE
     Route: 042
  4. AFATINIB [Suspect]
     Active Substance: AFATINIB
     Dosage: 30 MG DAILY
     Route: 048
  5. AFATINIB [Suspect]
     Active Substance: AFATINIB
     Indication: SQUAMOUS CELL CARCINOMA OF HEAD AND NECK
     Dosage: DAILY FOR 2 WEEKS AS LEAD IN
     Route: 065

REACTIONS (1)
  - Pancytopenia [Fatal]
